FAERS Safety Report 12210957 (Version 1)
Quarter: 2016Q1

REPORT INFORMATION
  Report Type: Spontaneous
  Country: US (occurrence: None)
  Receive Date: 20160324
  Receipt Date: 20160324
  Transmission Date: 20160526
  Serious: No
  Sender: FDA-Public Use
  Company Number: None

PATIENT
  Age: 59 Year
  Sex: Male

DRUGS (6)
  1. TASIGNA [Suspect]
     Active Substance: NILOTINIB
     Indication: CHRONIC MYELOID LEUKAEMIA
     Dosage: 2 CAPS BID
     Route: 048
     Dates: start: 20160125
  2. FEXOFENADINE [Concomitant]
     Active Substance: FEXOFENADINE\FEXOFENADINE HYDROCHLORIDE
  3. METHOTREXATE [Concomitant]
     Active Substance: METHOTREXATE
  4. CIPROFLOXACIN. [Concomitant]
     Active Substance: CIPROFLOXACIN
  5. FOLIC ACID. [Concomitant]
     Active Substance: FOLIC ACID
  6. SIMPONI [Concomitant]
     Active Substance: GOLIMUMAB

REACTIONS (3)
  - Nausea [None]
  - Fatigue [None]
  - Headache [None]

NARRATIVE: CASE EVENT DATE: 201602
